FAERS Safety Report 15688585 (Version 1)
Quarter: 2018Q4

REPORT INFORMATION
  Report Type: Spontaneous
  Country: US (occurrence: US)
  Receive Date: 20181205
  Receipt Date: 20181205
  Transmission Date: 20190205
  Serious: Yes (Other)
  Sender: FDA-Public Use
  Company Number: US-PROCTER_AND_GAMBLE-GS18133317

PATIENT
  Age: 83 Year
  Sex: Female

DRUGS (1)
  1. CREST [Suspect]
     Active Substance: SODIUM FLUORIDE
     Dosage: JUST A DAB, 2 /DAY
     Route: 002
     Dates: end: 201811

REACTIONS (1)
  - Tooth loss [Not Recovered/Not Resolved]
